FAERS Safety Report 5505439-9 (Version None)
Quarter: 2007Q4

REPORT INFORMATION
  Report Type: 
  Country: None (occurrence: None)
  Receive Date: 20071102
  Receipt Date: 20071029
  Transmission Date: 20080405
  Serious: Yes (Other)
  Sender: FDA-Public Use
  Company Number: US-BRISTOL-MYERS SQUIBB COMPANY-13960273

PATIENT
  Sex: Female

DRUGS (2)
  1. ERBITUX [Suspect]
  2. RADIATION THERAPY [Suspect]

REACTIONS (2)
  - SALIVA ALTERED [None]
  - SKIN EXFOLIATION [None]
